FAERS Safety Report 25134180 (Version 1)
Quarter: 2025Q1

REPORT INFORMATION
  Report Type: Spontaneous
  Country: DE (occurrence: DE)
  Receive Date: 20250328
  Receipt Date: 20250328
  Transmission Date: 20250409
  Serious: Yes (Congenital Anomaly)
  Sender: ACCORD
  Company Number: None

PATIENT
  Sex: Female
  Weight: 3.05 kg

DRUGS (11)
  1. SERTRALINE [Suspect]
     Active Substance: SERTRALINE HYDROCHLORIDE
     Dosage: STRENGTH: 100 MG
     Dates: start: 202306, end: 202403
  2. BUDESONIDE [Suspect]
     Active Substance: BUDESONIDE
  3. MECLOZINE DIHYDROCHLORIDE [Suspect]
     Active Substance: MECLOZINE DIHYDROCHLORIDE
  4. MELATONIN [Suspect]
     Active Substance: MELATONIN
  5. SUMATRIPTAN [Suspect]
     Active Substance: SUMATRIPTAN
  6. AMITRIPTYLINE [Concomitant]
     Active Substance: AMITRIPTYLINE
     Dates: start: 202306, end: 202307
  7. ALBUTEROL [Concomitant]
     Active Substance: ALBUTEROL
     Dates: start: 202306, end: 202307
  8. IBUPROFEN [Concomitant]
     Active Substance: IBUPROFEN
     Dosage: APPROXIMATELY EVERY 2 WEEKS
     Dates: start: 202306, end: 202307
  9. CELESTAMINE [Concomitant]
     Active Substance: BETAMETHASONE\DEXCHLORPHENIRAMINE MALEATE
     Dates: start: 202307, end: 202307
  10. ACETAMINOPHEN [Concomitant]
     Active Substance: ACETAMINOPHEN
     Dosage: APPROXIMATELY EVERY 2 WEEKS
     Dates: start: 202306, end: 202307
  11. ZOLMITRIPTAN [Concomitant]
     Active Substance: ZOLMITRIPTAN
     Dosage: STRENGTH: 5 MG
     Dates: start: 202307, end: 202307

REACTIONS (2)
  - Congenital hypoplasia of depressor angularis oris muscle [Not Recovered/Not Resolved]
  - Foetal exposure during pregnancy [Unknown]
